FAERS Safety Report 17982024 (Version 1)
Quarter: 2020Q3

REPORT INFORMATION
  Report Type: Report from Study
  Country: GB (occurrence: GB)
  Receive Date: 20200706
  Receipt Date: 20200706
  Transmission Date: 20201103
  Serious: Yes (Other)
  Sender: FDA-Public Use
  Company Number: GB-TEVA-2020-GB-1796850

PATIENT
  Age: 51 Year
  Sex: Female

DRUGS (2)
  1. OLARATUMAB [Suspect]
     Active Substance: OLARATUMAB
     Indication: PLEOMORPHIC LIPOSARCOMA
     Dosage: DAYS 1 AND 8 OF A 21 DAY CYCLE
     Route: 065
  2. DOXORUBICIN [Suspect]
     Active Substance: DOXORUBICIN
     Indication: PLEOMORPHIC LIPOSARCOMA
     Dosage: DAY 1 OF A 21 DAY CYCLE/ THE PATIENT RECEIVED TOTAL 6 CYCLES OF DOXORUBICIN
     Route: 065

REACTIONS (3)
  - Neutropenia [Unknown]
  - Anaemia [Unknown]
  - Thrombocytopenia [Unknown]
